FAERS Safety Report 7119994-9 (Version None)
Quarter: 2010Q4

REPORT INFORMATION
  Report Type: 
  Country: None (occurrence: None)
  Receive Date: 20101123
  Receipt Date: 20101116
  Transmission Date: 20110411
  Serious: Yes (Other)
  Sender: FDA-Public Use
  Company Number: US-AMGEN-USASP2010005353

PATIENT

DRUGS (4)
  1. NPLATE [Suspect]
     Indication: IDIOPATHIC THROMBOCYTOPENIC PURPURA
     Dates: start: 20090506, end: 20090506
  2. CORTICOSTEROIDS [Concomitant]
  3. RITUXIMAB [Concomitant]
     Dosage: UNK
     Dates: start: 20090421, end: 20090519
  4. ANTIBIOTICS [Concomitant]
     Indication: HELICOBACTER INFECTION

REACTIONS (1)
  - HELICOBACTER INFECTION [None]
